FAERS Safety Report 8134703-2 (Version None)
Quarter: 2012Q1

REPORT INFORMATION
  Report Type: 
  Country: None (occurrence: None)
  Receive Date: 20120214
  Receipt Date: 20120208
  Transmission Date: 20120608
  Serious: Yes (Hospitalization)
  Sender: FDA-Public Use
  Company Number: SE-PFIZER INC-2009172474

PATIENT
  Age: 65 Year
  Sex: Male
  Weight: 79 kg

DRUGS (4)
  1. SOMATROPIN [Suspect]
     Dosage: 0.2 MG, DAILY
     Dates: start: 20090827
  2. SOMATROPIN [Suspect]
     Indication: HYPOPITUITARISM
     Dosage: 0.3 MG, DAILY
     Dates: start: 19951024, end: 20090826
  3. TESTOVIRON-DEPOT [Concomitant]
     Dosage: 250 MG, MONTHLY
     Route: 030
     Dates: start: 19940301
  4. CORTISONE [Concomitant]
     Indication: BLOOD CORTICOTROPHIN
     Dosage: 12.5 MG, 2X/DAY
     Route: 048
     Dates: start: 19940101

REACTIONS (1)
  - PITUITARY TUMOUR BENIGN [None]
